FAERS Safety Report 10631046 (Version 1)
Quarter: 2014Q4

REPORT INFORMATION
  Report Type: Spontaneous
  Country: US (occurrence: US)
  Receive Date: 20141205
  Receipt Date: 20141205
  Transmission Date: 20150529
  Serious: No
  Sender: FDA-Public Use
  Company Number: US-PFIZER INC-2014331275

PATIENT
  Sex: Male

DRUGS (2)
  1. KADIAN [Suspect]
     Active Substance: MORPHINE SULFATE
     Dosage: UNK
  2. AVINZA [Suspect]
     Active Substance: MORPHINE SULFATE
     Dosage: UNK

REACTIONS (1)
  - Frequent bowel movements [Unknown]
